FAERS Safety Report 23587059 (Version 1)
Quarter: 2024Q1

REPORT INFORMATION
  Report Type: Spontaneous
  Country: US (occurrence: US)
  Receive Date: 20240301
  Receipt Date: 20240301
  Transmission Date: 20240409
  Serious: Yes (Other)
  Sender: FDA-Public Use
  Company Number: US-BRISTOL-MYERS SQUIBB COMPANY-2024-032335

PATIENT
  Age: 60 Year
  Sex: Female

DRUGS (1)
  1. LENALIDOMIDE [Suspect]
     Active Substance: LENALIDOMIDE
     Indication: Plasma cell myeloma recurrent
     Dosage: TAKE 1 CAPSULE BY MOUTH EVERY DAY ON DAYS1-21 EVERY 28 DAYS
     Route: 048

REACTIONS (7)
  - Product supply issue [Recovered/Resolved]
  - Pain [Unknown]
  - Fatigue [Unknown]
  - Ear infection [Unknown]
  - Diarrhoea [Unknown]
  - Product use issue [Unknown]
  - Therapy interrupted [Recovered/Resolved]
